FAERS Safety Report 12249011 (Version 6)
Quarter: 2016Q4

REPORT INFORMATION
  Report Type: Spontaneous
  Country: US (occurrence: US)
  Receive Date: 20160408
  Receipt Date: 20161129
  Transmission Date: 20170207
  Serious: Yes (Other)
  Sender: FDA-Public Use
  Company Number: US-PFIZER INC-2016067648

PATIENT
  Age: 53 Year
  Sex: Female
  Weight: 71 kg

DRUGS (5)
  1. IBRANCE [Suspect]
     Active Substance: PALBOCICLIB
     Indication: BREAST CANCER FEMALE
     Dosage: UNK
  2. IBRANCE [Suspect]
     Active Substance: PALBOCICLIB
     Dosage: 100 MG, CYCLIC (DAYS 1-21 Q28 DAYS)
     Route: 048
     Dates: start: 20151105
  3. IBRANCE [Suspect]
     Active Substance: PALBOCICLIB
     Dosage: 100 MG, CYCLIC (DAILY FOR21 DAYS THEN 1 WK OFF)
     Route: 048
     Dates: start: 20151105, end: 20161117
  4. IBRANCE [Suspect]
     Active Substance: PALBOCICLIB
     Indication: BREAST CANCER METASTATIC
     Dosage: 100 MG, CYCLIC, DAY 1-21 EVERY (Q) 28 DAYS
     Route: 048
     Dates: start: 20151105
  5. IBRANCE [Suspect]
     Active Substance: PALBOCICLIB
     Dosage: 100 MG, CYCLIC (DAYS 1-21 Q28 DAYS)
     Route: 048
     Dates: start: 20151105

REACTIONS (10)
  - Feeling jittery [Unknown]
  - Constipation [Unknown]
  - Drug dose omission [Unknown]
  - Neoplasm progression [Unknown]
  - Nervousness [Unknown]
  - Alopecia [Unknown]
  - Nausea [Unknown]
  - Neuropathy peripheral [Unknown]
  - Vision blurred [Unknown]
  - Abdominal pain upper [Unknown]
